FAERS Safety Report 7065584-6 (Version None)
Quarter: 2010Q4

REPORT INFORMATION
  Report Type: 
  Country: None (occurrence: None)
  Receive Date: 20101027
  Receipt Date: 20101022
  Transmission Date: 20110411
  Serious: Yes (Death)
  Sender: FDA-Public Use
  Company Number: US-JNJCH-2008001006

PATIENT
  Age: 31 Year
  Sex: Male

DRUGS (3)
  1. DEXTROMETHORPHAN HYDROBROMIDE [Suspect]
     Dosage: TEXT:UNSPECIFIED
     Route: 048
  2. ALPRAZOLAM [Suspect]
     Dosage: TEXT:UNSPECIFIED
     Route: 048
  3. ETHANOL [Suspect]
     Dosage: TEXT:UNSPECIFIED
     Route: 048

REACTIONS (2)
  - DRUG TOXICITY [None]
  - INTENTIONAL DRUG MISUSE [None]
